FAERS Safety Report 21284875 (Version 1)
Quarter: 2022Q3

REPORT INFORMATION
  Report Type: Spontaneous
  Country: TR (occurrence: TR)
  Receive Date: 20220902
  Receipt Date: 20220902
  Transmission Date: 20221027
  Serious: Yes (Other)
  Sender: FDA-Public Use
  Company Number: TR-SNT-000305

PATIENT
  Age: 19 Year
  Sex: Male

DRUGS (4)
  1. POSACONAZOLE [Suspect]
     Active Substance: POSACONAZOLE
     Indication: Prophylaxis
     Route: 065
  2. IDARUBICIN [Suspect]
     Active Substance: IDARUBICIN
     Indication: Product used for unknown indication
     Dosage: IDARUBICIN 12 MG/M2, ON DAYS 2, 4, 6, 8, INTRAVENOUS
     Route: 042
  3. TRETINOIN [Interacting]
     Active Substance: TRETINOIN
     Indication: Product used for unknown indication
     Dosage: ON THE 12TH DAY OF THE AIDA (ATRA, 45 MG/M2/DAY, ORAL)
     Route: 048
  4. TRETINOIN [Interacting]
     Active Substance: TRETINOIN
     Indication: Product used for unknown indication
     Route: 065

REACTIONS (3)
  - Idiopathic intracranial hypertension [Recovered/Resolved]
  - Papilloedema [Recovered/Resolved]
  - Potentiating drug interaction [Unknown]
